FAERS Safety Report 4820015-9 (Version None)
Quarter: 2005Q4

REPORT INFORMATION
  Report Type: 
  Country: None (occurrence: None)
  Receive Date: 20051031
  Receipt Date: 20050822
  Transmission Date: 20060501
  Serious: No
  Sender: FDA-Public Use
  Company Number: 2005PV001133

PATIENT
  Age: 73 Year
  Sex: Male
  Weight: 127.0072 kg

DRUGS (8)
  1. SYMLIN [Suspect]
     Indication: DIABETES MELLITUS NON-INSULIN-DEPENDENT
     Dosage: 60 MCG;TID;SC ; 120 MCG;TID;SC
     Route: 058
     Dates: start: 20050801
  2. SYMLIN [Suspect]
     Indication: DIABETES MELLITUS NON-INSULIN-DEPENDENT
     Dosage: 60 MCG;TID;SC ; 120 MCG;TID;SC
     Route: 058
     Dates: start: 20050821
  3. GLIPIZED [Concomitant]
  4. HYDROCHLOROTHIAZIDE [Concomitant]
  5. NORVASC [Concomitant]
  6. LANTUS [Concomitant]
  7. ACTOS [Concomitant]
  8. METFORMIN [Concomitant]

REACTIONS (3)
  - BLOOD GLUCOSE INCREASED [None]
  - DEPRESSION [None]
  - STRESS [None]
